FAERS Safety Report 21041107 (Version 1)
Quarter: 2022Q3

REPORT INFORMATION
  Report Type: Spontaneous
  Country: US (occurrence: US)
  Receive Date: 20220705
  Receipt Date: 20220705
  Transmission Date: 20221027
  Serious: Yes (Hospitalization)
  Sender: FDA-Public Use
  Company Number: US-GBT-013632

PATIENT
  Age: 8 Year
  Sex: Female

DRUGS (1)
  1. OXBRYTA [Suspect]
     Active Substance: VOXELOTOR
     Indication: Product used for unknown indication
     Route: 048

REACTIONS (5)
  - Hospitalisation [Unknown]
  - Respiratory disorder [Not Recovered/Not Resolved]
  - Product after taste [Not Recovered/Not Resolved]
  - Renal disorder [Not Recovered/Not Resolved]
  - Vein disorder [Unknown]

NARRATIVE: CASE EVENT DATE: 20220619
